FAERS Safety Report 18000493 (Version 3)
Quarter: 2020Q3

REPORT INFORMATION
  Report Type: Spontaneous
  Country: AU (occurrence: AU)
  Receive Date: 20200709
  Receipt Date: 20200914
  Transmission Date: 20201103
  Serious: No
  Sender: FDA-Public Use
  Company Number: AU-JNJFOC-20200703998

PATIENT
  Age: 71 Year
  Sex: Female

DRUGS (3)
  1. DUROGESIC [Suspect]
     Active Substance: FENTANYL
     Route: 062
  2. DUROGESIC [Suspect]
     Active Substance: FENTANYL
     Indication: PRODUCT USED FOR UNKNOWN INDICATION
     Dosage: JFB2K00.A, EXPIRY DATE: 31/05/2021?JFB2K00, EXPIRY: 31/05/2021
     Route: 062
  3. DUROGESIC [Suspect]
     Active Substance: FENTANYL
     Route: 062

REACTIONS (2)
  - Product adhesion issue [Unknown]
  - Product dose omission issue [Unknown]
